FAERS Safety Report 7518561-2 (Version None)
Quarter: 2011Q2

REPORT INFORMATION
  Report Type: 
  Country: None (occurrence: None)
  Receive Date: 20110601
  Receipt Date: 20110601
  Transmission Date: 20111010
  Serious: Yes (Hospitalization, Other)
  Sender: FDA-Public Use
  Company Number: None

PATIENT
  Age: 63 Year
  Sex: Male
  Weight: 106.5953 kg

DRUGS (4)
  1. FISH OIL [Concomitant]
  2. ASPIRIN  CHEWABLE BAYER [Concomitant]
  3. SIMVASTATIN [Suspect]
     Indication: HYPERCHOLESTEROLAEMIA
     Dosage: 20MG ONCE DAILY PO
     Route: 048
     Dates: start: 20091015, end: 20110501
  4. CHEWABLE BAYER [Concomitant]

REACTIONS (3)
  - GAIT DISTURBANCE [None]
  - FALL [None]
  - TENDON RUPTURE [None]
